FAERS Safety Report 17746273 (Version 1)
Quarter: 2020Q2

REPORT INFORMATION
  Report Type: Report from Study
  Country: ES (occurrence: ES)
  Receive Date: 20200505
  Receipt Date: 20200505
  Transmission Date: 20200714
  Serious: Yes (Hospitalization)
  Sender: FDA-Public Use
  Company Number: ES-MYLANLABS-2020M1043339

PATIENT
  Age: 86 Year
  Sex: Male

DRUGS (5)
  1. RIFAXIMINA [Concomitant]
     Active Substance: RIFAXIMIN
     Indication: HEPATIC CIRRHOSIS
     Dosage: 1.2 GRAM, QD
     Route: 048
     Dates: start: 20171127
  2. EMPORTAL [Concomitant]
     Indication: HEPATIC CIRRHOSIS
     Dosage: 60 GRAM, QD
     Route: 048
     Dates: start: 20170907
  3. FUROSEMIDE. [Suspect]
     Active Substance: FUROSEMIDE
     Indication: ASCITES
     Dosage: 60 MILLIGRAM, QD
     Route: 048
     Dates: start: 20171212, end: 20171218
  4. ENALAPRIL [Interacting]
     Active Substance: ENALAPRIL
     Indication: HYPERTENSION
     Dosage: 20 MILLIGRAM, QD
     Route: 048
     Dates: start: 20071024, end: 20171218
  5. ALOPURINOL [Concomitant]
     Active Substance: ALLOPURINOL
     Indication: GOUT
     Dosage: 10 MILLIGRAM, QD
     Route: 048
     Dates: start: 20151024, end: 20171218

REACTIONS (2)
  - Acute kidney injury [Recovered/Resolved]
  - Drug interaction [Unknown]

NARRATIVE: CASE EVENT DATE: 20171212
